FAERS Safety Report 21281085 (Version 1)
Quarter: 2022Q3

REPORT INFORMATION
  Report Type: Spontaneous
  Country: CN (occurrence: CN)
  Receive Date: 20220901
  Receipt Date: 20220901
  Transmission Date: 20221027
  Serious: Yes (Other)
  Sender: FDA-Public Use
  Company Number: CN-STRIDES ARCOLAB LIMITED-2022SP010782

PATIENT
  Age: 80 Year
  Sex: Male

DRUGS (1)
  1. SOLIFENACIN SUCCINATE [Suspect]
     Active Substance: SOLIFENACIN SUCCINATE
     Indication: Benign prostatic hyperplasia
     Dosage: UNK, CUMULATIVE DOSE WAS 300MG AFTER TREATMENT DURATION OF 9 WEEKS
     Route: 065
     Dates: start: 2018

REACTIONS (4)
  - Dementia [Unknown]
  - Condition aggravated [Unknown]
  - Cognitive disorder [Unknown]
  - Off label use [Unknown]
